FAERS Safety Report 5005605-5 (Version None)
Quarter: 2006Q2

REPORT INFORMATION
  Report Type: 
  Country: None (occurrence: None)
  Receive Date: 20060518
  Receipt Date: 20060510
  Transmission Date: 20061013
  Serious: Yes (Hospitalization)
  Sender: FDA-Public Use
  Company Number: JP-JNJFOC-20060402745

PATIENT
  Sex: Male

DRUGS (5)
  1. ITRIZOLE [Suspect]
     Indication: PROPHYLAXIS
     Route: 048
     Dates: start: 20060206, end: 20060227
  2. MEROPENEM TRIHYDRATE [Suspect]
     Indication: ACUTE MYELOID LEUKAEMIA
     Dates: start: 20060207, end: 20060311
  3. FLUCONAZOLE [Concomitant]
     Indication: ACUTE MYELOID LEUKAEMIA
     Route: 048
     Dates: start: 20060301, end: 20060309
  4. VANCOMYCIN HYDROCHLORIDE [Concomitant]
     Indication: ACUTE MYELOID LEUKAEMIA
     Route: 065
  5. LEVOFLOXACIN [Concomitant]
     Route: 048
     Dates: start: 20060206, end: 20060214

REACTIONS (1)
  - ALVEOLITIS ALLERGIC [None]
